FAERS Safety Report 16108791 (Version 4)
Quarter: 2019Q2

REPORT INFORMATION
  Report Type: Spontaneous
  Country: FR (occurrence: FR)
  Receive Date: 20190323
  Receipt Date: 20190501
  Transmission Date: 20190711
  Serious: Yes (Death, Other)
  Sender: FDA-Public Use
  Company Number: PHHY2019FR062167

PATIENT
  Age: 70 Year
  Sex: Male

DRUGS (4)
  1. NEORAL [Suspect]
     Active Substance: CYCLOSPORINE
     Indication: IMMUNOSUPPRESSANT DRUG THERAPY
  2. MYCOPHENOLIC ACID. [Suspect]
     Active Substance: MYCOPHENOLIC ACID
     Indication: RENAL TRANSPLANT
     Dosage: UNK
     Route: 065
  3. NEORAL [Suspect]
     Active Substance: CYCLOSPORINE
     Indication: RENAL TRANSPLANT
     Dosage: 100 UNK, BID
     Route: 048
  4. MYCOPHENOLIC ACID. [Suspect]
     Active Substance: MYCOPHENOLIC ACID
     Indication: IMMUNOSUPPRESSANT DRUG THERAPY
     Dosage: 750 MG, BID
     Route: 065

REACTIONS (17)
  - Metastases to central nervous system [Unknown]
  - Brain oedema [Unknown]
  - Electrolyte imbalance [Unknown]
  - Neutropenia [Unknown]
  - Haemolytic anaemia [Unknown]
  - Renal impairment [Unknown]
  - Autoimmune colitis [Unknown]
  - Colitis [Unknown]
  - Diarrhoea [Recovered/Resolved]
  - Malignant melanoma [Unknown]
  - Thrombocytopenia [Unknown]
  - Metastases to salivary gland [Unknown]
  - Lymphopenia [Unknown]
  - Diarrhoea [Unknown]
  - Carcinoid tumour pulmonary [Fatal]
  - Cytomegalovirus infection [Unknown]
  - Metastases to lung [Unknown]

NARRATIVE: CASE EVENT DATE: 201707
